FAERS Safety Report 7118921-8 (Version None)
Quarter: 2010Q4

REPORT INFORMATION
  Report Type: 
  Country: None (occurrence: None)
  Receive Date: 20101123
  Receipt Date: 20101112
  Transmission Date: 20110411
  Serious: Yes (Hospitalization)
  Sender: FDA-Public Use
  Company Number: DE-ROCHE-732008

PATIENT
  Sex: Female
  Weight: 61 kg

DRUGS (6)
  1. BEVACIZUMAB [Suspect]
     Indication: NON-SMALL CELL LUNG CANCER
     Dosage: FORM: INFUSION, LAST DOSE PRIOR TO SAE: 11 OCTOBER 2010.
     Route: 042
     Dates: start: 20100512, end: 20101028
  2. PEMETREXED [Suspect]
     Indication: NON-SMALL CELL LUNG CANCER
     Dosage: FORM: INFUSION, LAST DOSE PRIOR TO SAE: 11 OCTOBER 2010.
     Route: 042
     Dates: start: 20100510, end: 20101028
  3. FORTECORTIN [Concomitant]
     Dosage: TDD: 1DF/D.
     Dates: start: 20100512, end: 20101011
  4. FOLSAN [Concomitant]
     Dosage: TDD: 1DF/D
     Dates: start: 20100505
  5. KEVATRIL [Concomitant]
     Dosage: TOTAL DAILY DOSE: 1 DF/D.
     Dates: start: 20100512, end: 20101011
  6. FORTECORTIN [Concomitant]
     Dosage: TDD: 1 DF/D.
     Dates: start: 20100512, end: 20101011

REACTIONS (10)
  - BLOOD GLUCOSE INCREASED [None]
  - DECREASED APPETITE [None]
  - FATIGUE [None]
  - GENERAL PHYSICAL HEALTH DETERIORATION [None]
  - HYPERVENTILATION [None]
  - RED BLOOD CELL COUNT DECREASED [None]
  - SPLEEN DISORDER [None]
  - VENOUS OCCLUSION [None]
  - WEIGHT DECREASED [None]
  - WHITE BLOOD CELL COUNT DECREASED [None]
